FAERS Safety Report 25024154 (Version 1)
Quarter: 2025Q1

REPORT INFORMATION
  Report Type: Spontaneous
  Country: US (occurrence: None)
  Receive Date: 20250228
  Receipt Date: 20250228
  Transmission Date: 20250409
  Serious: Yes (Hospitalization)
  Sender: FDA-CTU
  Company Number: None

PATIENT
  Age: 75 Year
  Sex: Male

DRUGS (1)
  1. MIRABEGRON [Suspect]
     Active Substance: MIRABEGRON
     Indication: Lower urinary tract symptoms
     Dosage: FREQUENCY : DAILY;?
     Route: 048

REACTIONS (2)
  - Urinary retention [None]
  - Urinary tract infection [None]

NARRATIVE: CASE EVENT DATE: 20241112
